FAERS Safety Report 9530168 (Version 4)
Quarter: 2013Q4

REPORT INFORMATION
  Report Type: Report from Study
  Country: CZ (occurrence: CZ)
  Receive Date: 20130917
  Receipt Date: 20131028
  Transmission Date: 20140711
  Serious: Yes (Death)
  Sender: FDA-Public Use
  Company Number: CZ-PFIZER INC-2013228542

PATIENT
  Sex: Male

DRUGS (1)
  1. SUTENT [Suspect]
     Indication: RENAL CELL CARCINOMA
     Dosage: 50 MG, CYCLIC, 4 WEEKS ON/2 WEEKS OFF
     Route: 048
     Dates: start: 20120713, end: 20120919

REACTIONS (6)
  - Death [Fatal]
  - Leukopenia [Unknown]
  - Platelet count decreased [Unknown]
  - Anaemia [Unknown]
  - Disease progression [Unknown]
  - Renal cell carcinoma [Unknown]
